FAERS Safety Report 8881246 (Version 1)
Quarter: 2012Q4

REPORT INFORMATION
  Report Type: 
  Country: GB (occurrence: GB)
  Receive Date: 20121031
  Receipt Date: 20121031
  Transmission Date: 20130627
  Serious: Yes (Other)
  Sender: FDA-Public Use
  Company Number: GB-MYLANLABS-2012S1022001

PATIENT
  Age: 28 Year
  Sex: Female

DRUGS (6)
  1. TRETINOIN [Suspect]
     Indication: ACUTE PROMYELOCYTIC LEUKAEMIA
     Dosage: 45 mg/m2/day in two divided doses starting d1
     Route: 065
  2. IDARUBICIN [Suspect]
     Indication: ACUTE PROMYELOCYTIC LEUKAEMIA
     Dosage: 12 mg/m2 on alternate days starting d2
     Route: 065
  3. ALLOPURINOL [Concomitant]
     Indication: TUMOUR LYSIS SYNDROME
     Route: 065
  4. ACICLOVIR [Concomitant]
     Indication: ANTIBIOTIC PROPHYLAXIS
     Route: 065
  5. ITRACONAZOLE [Concomitant]
     Indication: ANTIBIOTIC PROPHYLAXIS
     Route: 065
  6. PIPERACILLIN W/TAZOBACTAM          /01606301/ [Concomitant]
     Indication: FEBRILE NEUTROPENIA
     Dosage: Piperacillin 4g/Tazobactam 0.5g
     Route: 065

REACTIONS (2)
  - Acute promyelocytic leukaemia differentiation syndrome [Recovered/Resolved]
  - Nodal arrhythmia [Recovered/Resolved]
